FAERS Safety Report 17955860 (Version 1)
Quarter: 2020Q2

REPORT INFORMATION
  Report Type: Spontaneous
  Country: US (occurrence: US)
  Receive Date: 20200629
  Receipt Date: 20200629
  Transmission Date: 20200714
  Serious: No
  Sender: FDA-Public Use
  Company Number: None

PATIENT
  Age: 69 Year
  Sex: Male

DRUGS (1)
  1. GABAPENTIN (GABAPENTIN 600MG CAP) [Suspect]
     Active Substance: GABAPENTIN
     Indication: OEDEMA PERIPHERAL
     Dates: start: 20180716, end: 20180801

REACTIONS (1)
  - Oedema peripheral [None]

NARRATIVE: CASE EVENT DATE: 20180801
